FAERS Safety Report 7742777-3 (Version None)
Quarter: 2011Q3

REPORT INFORMATION
  Report Type: 
  Country: None (occurrence: None)
  Receive Date: 20110908
  Receipt Date: 20110908
  Transmission Date: 20111222
  Serious: Yes (Hospitalization)
  Sender: FDA-Public Use
  Company Number: None

PATIENT
  Sex: Female
  Weight: 75.7 kg

DRUGS (1)
  1. SOLIRIS [Suspect]
     Indication: PROPHYLAXIS AGAINST TRANSPLANT REJECTION
     Dosage: 1200 MG ONCE IV 900 MG ONCE IV
     Route: 042
     Dates: start: 20110825

REACTIONS (5)
  - HAEMOGLOBIN DECREASED [None]
  - AZOTAEMIA [None]
  - COMPLICATIONS OF TRANSPLANT SURGERY [None]
  - POST PROCEDURAL HAEMORRHAGE [None]
  - COAGULOPATHY [None]
